FAERS Safety Report 14926159 (Version 1)
Quarter: 2018Q2

REPORT INFORMATION
  Report Type: Spontaneous
  Country: US (occurrence: US)
  Receive Date: 20180523
  Receipt Date: 20180523
  Transmission Date: 20180711
  Serious: No
  Sender: FDA-Public Use
  Company Number: US-TRIS PHARMA, INC-2018TRISPO00382

PATIENT

DRUGS (2)
  1. DEXTROMETHORPHAN POLISTIREX [Suspect]
     Active Substance: DEXTROMETHORPHAN HYDROBROMIDE
     Indication: COUGH
     Dosage: UNK
     Route: 048
     Dates: start: 201804, end: 201804
  2. DEXTROMETHORPHAN POLISTIREX [Suspect]
     Active Substance: DEXTROMETHORPHAN HYDROBROMIDE
     Indication: RHINORRHOEA
     Dosage: 2.5 ML, QD (ONE TIME AT NIGHT)
     Route: 048
     Dates: start: 201804, end: 20180419

REACTIONS (4)
  - Erythema [Recovered/Resolved]
  - Headache [Recovered/Resolved]
  - Tinnitus [Recovered/Resolved]
  - Incorrect dose administered [Unknown]

NARRATIVE: CASE EVENT DATE: 201804
